FAERS Safety Report 8487911-5 (Version None)
Quarter: 2012Q3

REPORT INFORMATION
  Report Type: 
  Country: None (occurrence: None)
  Receive Date: 20120705
  Receipt Date: 20120626
  Transmission Date: 20120928
  Serious: Yes (Hospitalization, Other)
  Sender: FDA-Public Use
  Company Number: JP-PFIZER INC-2012151199

PATIENT
  Age: 52 Year
  Sex: Female

DRUGS (7)
  1. PAXIL [Suspect]
     Indication: DEPRESSION
     Dosage: 40 MG, 1X/DAY
     Route: 048
     Dates: start: 20120101
  2. LEVOTHYROXINE SODIUM [Suspect]
     Indication: AUTOIMMUNE THYROIDITIS
     Dosage: 50 MG, 1X/DAY
     Route: 048
     Dates: start: 20120101
  3. BERIZYM [Concomitant]
     Indication: PROTEIN-LOSING GASTROENTEROPATHY
     Dosage: 3 G, 1X/DAY
     Route: 048
     Dates: start: 20120401
  4. LYRICA [Suspect]
     Dosage: 150 MG, 1X/DAY
     Route: 048
     Dates: start: 20120501
  5. SLOW-K [Concomitant]
     Indication: ANAEMIA
     Dosage: 1800 MG, 1X/DAY
     Route: 048
     Dates: start: 20120401
  6. MIGSIS [Suspect]
     Route: 048
  7. ALFAROL [Concomitant]
     Indication: OSTEOPOROSIS
     Dosage: 0.25 UG, 1X/DAY
     Route: 048
     Dates: start: 20120401

REACTIONS (1)
  - HYPOKALAEMIA [None]
